FAERS Safety Report 20933540 (Version 1)
Quarter: 2022Q2

REPORT INFORMATION
  Report Type: Report from Study
  Country: US (occurrence: US)
  Receive Date: 20220608
  Receipt Date: 20220608
  Transmission Date: 20220720
  Serious: No
  Sender: FDA-Public Use
  Company Number: US-NOVARTISTESTPH-NVSC2022US131785

PATIENT
  Sex: Female

DRUGS (1)
  1. COSENTYX [Suspect]
     Active Substance: SECUKINUMAB
     Indication: Peripheral swelling
     Dosage: 300 MG/KG, QMO
     Route: 058

REACTIONS (2)
  - Peripheral swelling [Unknown]
  - Product use in unapproved indication [Unknown]
